FAERS Safety Report 24827339 (Version 2)
Quarter: 2025Q1

REPORT INFORMATION
  Report Type: Spontaneous
  Country: US (occurrence: US)
  Receive Date: 20250109
  Receipt Date: 20250310
  Transmission Date: 20250409
  Serious: No
  Sender: SANOFI AVENTIS
  Company Number: US-SA-2025SA007273

PATIENT
  Age: 76 Year
  Sex: Male

DRUGS (18)
  1. DUPIXENT [Suspect]
     Active Substance: DUPILUMAB
     Indication: Eczema
     Dates: start: 202411, end: 202411
  2. DUPIXENT [Suspect]
     Active Substance: DUPILUMAB
     Dosage: 300 MG, QOW
     Dates: start: 2024, end: 202412
  3. CLOBETASOL [Concomitant]
     Active Substance: CLOBETASOL
  4. LORAZEPAM [Concomitant]
     Active Substance: LORAZEPAM
  5. FUROSEMIDE [Concomitant]
     Active Substance: FUROSEMIDE
  6. CLOPIDOGREL [Concomitant]
     Active Substance: CLOPIDOGREL BISULFATE
  7. ONDANSETRON [Concomitant]
     Active Substance: ONDANSETRON
  8. LISINOPRIL [Concomitant]
     Active Substance: LISINOPRIL
  9. CITALOPRAM [Concomitant]
     Active Substance: CITALOPRAM
  10. BUPROPION HYDROCHLORIDE [Concomitant]
     Active Substance: BUPROPION HYDROCHLORIDE
     Route: 048
  11. MONTELUKAST [Concomitant]
     Active Substance: MONTELUKAST
  12. MIRTAZAPINE [Concomitant]
     Active Substance: MIRTAZAPINE
  13. SPIRONOLACTONE [Concomitant]
     Active Substance: SPIRONOLACTONE
  14. KETOCONAZOLE [Concomitant]
     Active Substance: KETOCONAZOLE
     Dosage: BIW
     Route: 061
  15. POTASSIUM CHLORIDE [Concomitant]
     Active Substance: POTASSIUM CHLORIDE
  16. MIDODRINE HYDROCHLORIDE [Concomitant]
     Active Substance: MIDODRINE HYDROCHLORIDE
  17. QUETIAPINE [Concomitant]
     Active Substance: QUETIAPINE
  18. VANICREAM [Concomitant]
     Active Substance: TITANIUM DIOXIDE\ZINC OXIDE

REACTIONS (5)
  - Dermatitis psoriasiform [Unknown]
  - Pruritus [Unknown]
  - Rash erythematous [Unknown]
  - Skin plaque [Unknown]
  - Rash [Not Recovered/Not Resolved]

NARRATIVE: CASE EVENT DATE: 20240101
